FAERS Safety Report 4721753-9 (Version None)
Quarter: 2005Q3

REPORT INFORMATION
  Report Type: 
  Country: None (occurrence: None)
  Receive Date: 20050721
  Receipt Date: 20050329
  Transmission Date: 20060218
  Serious: No
  Sender: FDA-Public Use
  Company Number: US-BRISTOL-MYERS SQUIBB COMPANY-12914537

PATIENT
  Age: 82 Year
  Sex: Female

DRUGS (6)
  1. COUMADIN [Suspect]
     Indication: MITRAL VALVE REPLACEMENT
     Route: 048
     Dates: start: 19940101
  2. OS-CAL [Suspect]
     Indication: MINERAL SUPPLEMENTATION
     Route: 048
     Dates: start: 19920101
  3. OS-CAL + D [Suspect]
     Indication: MINERAL SUPPLEMENTATION
     Route: 048
  4. HYDROCHLOROTHIAZIDE [Concomitant]
  5. VASOTEC RPD [Concomitant]
  6. ACTONEL [Concomitant]

REACTIONS (1)
  - PROTHROMBIN LEVEL DECREASED [None]
